FAERS Safety Report 17082198 (Version 1)
Quarter: 2019Q4

REPORT INFORMATION
  Report Type: Report from Study
  Country: CA (occurrence: CA)
  Receive Date: 20191127
  Receipt Date: 20191127
  Transmission Date: 20200122
  Serious: Yes (Hospitalization, Other)
  Sender: FDA-Public Use
  Company Number: PHHY2019CA030053

PATIENT
  Sex: Female

DRUGS (3)
  1. LETROZOLE. [Suspect]
     Active Substance: LETROZOLE
     Indication: PRODUCT USED FOR UNKNOWN INDICATION
     Route: 065
  2. KISQALI [Suspect]
     Active Substance: RIBOCICLIB
     Indication: BREAST CANCER METASTATIC
     Dosage: UNK
     Route: 048
     Dates: start: 20181212
  3. KISQALI [Suspect]
     Active Substance: RIBOCICLIB
     Dosage: 400 MG, UNK
     Route: 048
     Dates: start: 20190201

REACTIONS (9)
  - Neutrophil count decreased [Unknown]
  - Hyperhidrosis [Unknown]
  - Alanine aminotransferase increased [Unknown]
  - Full blood count decreased [Unknown]
  - Peripheral swelling [Unknown]
  - Emotional disorder [Unknown]
  - Malaise [Unknown]
  - Pruritus [Unknown]
  - Influenza [Unknown]
